FAERS Safety Report 25010424 (Version 1)
Quarter: 2025Q1

REPORT INFORMATION
  Report Type: Report from Study
  Country: US (occurrence: US)
  Receive Date: 20250225
  Receipt Date: 20250225
  Transmission Date: 20250409
  Serious: Yes (Hospitalization, Other)
  Sender: ALEXION PHARMACEUTICALS
  Company Number: US-ALXN-A202302151AA

PATIENT
  Age: 73 Year

DRUGS (1)
  1. STRENSIQ [Suspect]
     Active Substance: ASFOTASE ALFA
     Dosage: UNK, SIX TIMES/WEEK
     Route: 065

REACTIONS (21)
  - Haemorrhage [Unknown]
  - Transient ischaemic attack [Not Recovered/Not Resolved]
  - Meningioma [Unknown]
  - Spinal compression fracture [Unknown]
  - Syncope [Unknown]
  - Lumbar vertebral fracture [Unknown]
  - Osteoarthritis [Unknown]
  - Fall [Unknown]
  - Back pain [Unknown]
  - Body height decreased [Unknown]
  - Loose tooth [Unknown]
  - Abdominal fat apron [Unknown]
  - Gout [Unknown]
  - Slow speech [Recovered/Resolved]
  - Musculoskeletal pain [Not Recovered/Not Resolved]
  - Glomerular filtration rate decreased [Unknown]
  - Blood chloride decreased [Unknown]
  - Blood phosphorus increased [Unknown]
  - Pain [Not Recovered/Not Resolved]
  - Pain in extremity [Unknown]
  - Brain fog [Recovered/Resolved]
